FAERS Safety Report 5133248-1 (Version None)
Quarter: 2006Q4

REPORT INFORMATION
  Report Type: 
  Country: None (occurrence: None)
  Receive Date: 20061018
  Receipt Date: 20061005
  Transmission Date: 20070319
  Serious: Yes (Disabling)
  Sender: FDA-Public Use
  Company Number: SPV1-2006-01162

PATIENT
  Age: 81 Year
  Sex: Male

DRUGS (7)
  1. PENTASA [Suspect]
     Indication: COLITIS ULCERATIVE
     Dosage: 1 G, 2X DAY:BID, ORAL
     Route: 048
     Dates: start: 20050922, end: 20060330
  2. FERROUS SULPHATE (FERROUS SULFATE, FOLIC ACID [Concomitant]
  3. LANSOPRAZOLE [Concomitant]
  4. MEBEVERINE (MEBEVERINE) [Concomitant]
  5. MOVICOL (SODIUM BICARBONATE, POTASSIUM CHLORIDE, SODIUM CHLORIDE, MACR [Concomitant]
  6. PREDNISOLONE [Concomitant]
  7. SERETIDE (FLUTICASONE PROPIONATE, SALMETEROL) [Concomitant]

REACTIONS (1)
  - ALVEOLITIS [None]
